FAERS Safety Report 5897717-9 (Version None)
Quarter: 2008Q3

REPORT INFORMATION
  Report Type: 
  Country: None (occurrence: None)
  Receive Date: 20080925
  Receipt Date: 20080917
  Transmission Date: 20090109
  Serious: Yes (Other)
  Sender: FDA-Public Use
  Company Number: PHHY2008US22134

PATIENT
  Sex: Female

DRUGS (2)
  1. CLOZARIL [Suspect]
     Indication: PSYCHOTIC DISORDER
     Dosage: 400 MG, UNK
  2. CLOZARIL [Suspect]
     Indication: BIPOLAR DISORDER

REACTIONS (7)
  - ASTHMA [None]
  - DERMATITIS ATOPIC [None]
  - EAR PAIN [None]
  - HEADACHE [None]
  - PAIN OF SKIN [None]
  - PYREXIA [None]
  - WHITE BLOOD CELL COUNT INCREASED [None]
